FAERS Safety Report 7528028-3 (Version None)
Quarter: 2011Q2

REPORT INFORMATION
  Report Type: 
  Country: None (occurrence: None)
  Receive Date: 20110607
  Receipt Date: 20110309
  Transmission Date: 20111010
  Serious: Yes (Death, Hospitalization)
  Sender: FDA-Public Use
  Company Number: US-BAYER-2011-006241

PATIENT
  Age: 79 Year
  Sex: Male
  Weight: 91 kg

DRUGS (16)
  1. RED BLOOD CELLS [Concomitant]
     Dosage: 2 U, UNK
     Route: 042
     Dates: start: 20030603, end: 20030603
  2. CRYOPRECIPITATES [Concomitant]
     Dosage: 8 U, UNK
     Route: 042
     Dates: start: 20030603, end: 20030603
  3. BICARBONAT [Concomitant]
     Dosage: 50 MEQ, UNK
     Route: 042
     Dates: start: 20030603, end: 20030603
  4. ANCEF [Concomitant]
     Dosage: 1 G, UNK
     Route: 042
     Dates: start: 20030603, end: 20030603
  5. INSULIN [INSULIN] [Concomitant]
     Dosage: 25 U, UNK
     Route: 042
     Dates: start: 20030603, end: 20030608
  6. PLASMA [Concomitant]
     Dosage: 2 U, UNK
     Route: 042
     Dates: start: 20030603, end: 20030603
  7. TRASYLOL [Suspect]
     Indication: CORONARY ARTERY BYPASS
     Dosage: 1 ML, UNK
     Route: 042
     Dates: start: 20030603, end: 20030603
  8. TRASYLOL [Suspect]
     Dosage: 200 ML, UNK
     Route: 042
     Dates: start: 20030603, end: 20030603
  9. LESCOL [Concomitant]
     Dosage: 80 MG, UNK
     Route: 048
  10. ATIVAN [Concomitant]
     Dosage: 12 ML/HR, UNK
     Route: 042
     Dates: start: 20030603, end: 20030610
  11. MANNITOL [Concomitant]
     Dosage: 250 MG, UNK
     Route: 042
     Dates: start: 20030603, end: 20030603
  12. GLUCOTROL [Concomitant]
     Dosage: 5 MG, UNK
     Route: 048
  13. NEO-SYNEPHRINE [Concomitant]
     Dosage: 20 MCG/MIN, UNK
     Route: 042
     Dates: start: 20030603, end: 20030610
  14. ALBUMIN (HUMAN) [Concomitant]
     Dosage: 50 ML, UNK
     Route: 042
     Dates: start: 20030603, end: 20030603
  15. DOBUTAMINE HYDROCHLORIDE [Concomitant]
     Dosage: 5 MCG, UNK
     Route: 042
     Dates: start: 20030603, end: 20030610
  16. HEPARIN [Concomitant]
     Dosage: 5000 U, UNK
     Route: 042
     Dates: start: 20030603, end: 20030610

REACTIONS (6)
  - EMOTIONAL DISTRESS [None]
  - INJURY [None]
  - ANXIETY [None]
  - METASTATIC GASTRIC CANCER [None]
  - PAIN [None]
  - RENAL FAILURE [None]
